FAERS Safety Report 6266000-4 (Version None)
Quarter: 2009Q3

REPORT INFORMATION
  Report Type: 
  Country: None (occurrence: None)
  Receive Date: 20090709
  Receipt Date: 20090709
  Transmission Date: 20100115
  Serious: Yes (Hospitalization)
  Sender: FDA-Public Use
  Company Number: None

PATIENT
  Sex: Female
  Weight: 77.4 kg

DRUGS (7)
  1. PREDNISONE [Suspect]
     Indication: DERMATOMYOSITIS
     Dosage: 60MG DAILY PO X PAST 13 DAYS PTA
  2. ADVAIR HFA [Concomitant]
  3. PREDNISONE [Concomitant]
  4. LASIX [Concomitant]
  5. NYSTATIN [Concomitant]
  6. ALBUTEROL NABS [Concomitant]
  7. . [Concomitant]

REACTIONS (3)
  - ANAEMIA [None]
  - DUODENAL ULCER HAEMORRHAGE [None]
  - DYSPNOEA [None]
